FAERS Safety Report 8312363-5 (Version None)
Quarter: 2012Q2

REPORT INFORMATION
  Report Type: 
  Country: None (occurrence: None)
  Receive Date: 20120425
  Receipt Date: 20120410
  Transmission Date: 20120825
  Serious: Yes (Hospitalization)
  Sender: FDA-Public Use
  Company Number: TR-AMGEN-TURSP2012012273

PATIENT
  Age: 19 Year
  Sex: Female

DRUGS (1)
  1. ENBREL [Suspect]
     Indication: RHEUMATOID ARTHRITIS
     Dosage: 25 MG, 2 TIMES/WK
     Route: 058
     Dates: start: 20110826, end: 20120101

REACTIONS (4)
  - BALANCE DISORDER [None]
  - RESPIRATORY DISTRESS [None]
  - LUPUS VASCULITIS [None]
  - GAIT DISTURBANCE [None]
